FAERS Safety Report 11219910 (Version 2)
Quarter: 2015Q3

REPORT INFORMATION
  Report Type: Spontaneous
  Country: US (occurrence: US)
  Receive Date: 20150625
  Receipt Date: 20150831
  Transmission Date: 20151125
  Serious: Yes (Other)
  Sender: FDA-Public Use
  Company Number: US-009507513-1506USA011397

PATIENT
  Sex: Female

DRUGS (1)
  1. PRINIVIL [Suspect]
     Active Substance: LISINOPRIL
     Dosage: UNK, UNKNOWN
     Route: 048

REACTIONS (13)
  - Hypertension [Unknown]
  - Asthenia [Unknown]
  - Coma [Unknown]
  - Cough [Unknown]
  - Chills [Unknown]
  - Fatigue [Unknown]
  - Anaphylactic shock [Unknown]
  - Hypersensitivity [Unknown]
  - Pyrexia [Unknown]
  - Tremor [Unknown]
  - Joint swelling [Unknown]
  - Blood calcium increased [Unknown]
  - Facial pain [Unknown]
